FAERS Safety Report 6303863-8 (Version None)
Quarter: 2009Q3

REPORT INFORMATION
  Report Type: 
  Country: None (occurrence: None)
  Receive Date: 20090807
  Receipt Date: 20090807
  Transmission Date: 20100115
  Serious: Yes (Hospitalization)
  Sender: FDA-Public Use
  Company Number: None

PATIENT
  Age: 60 Year
  Sex: Male
  Weight: 89.1 kg

DRUGS (1)
  1. GLYBURIDE [Suspect]
     Indication: DIABETES MELLITUS
     Dosage: 7.5 MG BID PO
     Route: 048
     Dates: start: 20080509, end: 20090803

REACTIONS (2)
  - HYPOGLYCAEMIA [None]
  - SYNCOPE [None]
